FAERS Safety Report 7954515-X (Version None)
Quarter: 2011Q4

REPORT INFORMATION
  Report Type: 
  Country: None (occurrence: None)
  Receive Date: 20111202
  Receipt Date: 20111201
  Transmission Date: 20120403
  Serious: No
  Sender: FDA-Public Use
  Company Number: US-PFIZER INC-2011293922

PATIENT
  Sex: Female
  Weight: 64.399 kg

DRUGS (2)
  1. BENADRYL [Suspect]
     Indication: EAR DISORDER
     Dosage: 25 MG, 1X/DAY
     Route: 048
     Dates: start: 20111127, end: 20111128
  2. SERTRALINE HYDROCHLORIDE [Suspect]
     Indication: HORMONE LEVEL ABNORMAL
     Dosage: 100 MG, 2X/DAY
     Route: 048
     Dates: start: 20100101

REACTIONS (5)
  - HORMONE LEVEL ABNORMAL [None]
  - EAR DISORDER [None]
  - SWELLING [None]
  - PAIN [None]
  - GAIT DISTURBANCE [None]
